FAERS Safety Report 4966775-8 (Version None)
Quarter: 2006Q2

REPORT INFORMATION
  Report Type: 
  Country: None (occurrence: None)
  Receive Date: 20060407
  Receipt Date: 20051017
  Transmission Date: 20061013
  Serious: Yes (Hospitalization)
  Sender: FDA-Public Use
  Company Number: US-MERCK-0510USA07725

PATIENT
  Age: 60 Year
  Sex: Male
  Weight: 109 kg

DRUGS (5)
  1. VIOXX [Suspect]
     Route: 048
     Dates: start: 20020901, end: 20040901
  2. LIPITOR [Concomitant]
     Indication: BLOOD CHOLESTEROL
     Route: 065
  3. SYNTHROID [Concomitant]
     Indication: BASEDOW'S DISEASE
     Route: 065
  4. LASIX [Concomitant]
     Route: 065
  5. METOPROLOL-BC [Concomitant]
     Route: 065

REACTIONS (1)
  - MYOCARDIAL INFARCTION [None]
